FAERS Safety Report 21861778 (Version 1)
Quarter: 2023Q1

REPORT INFORMATION
  Report Type: Spontaneous
  Country: GR (occurrence: GR)
  Receive Date: 20230113
  Receipt Date: 20230113
  Transmission Date: 20230418
  Serious: Yes (Life-Threatening, Other)
  Sender: FDA-Public Use
  Company Number: GR-PFIZER INC-PV202200110989

PATIENT
  Age: 47 Year
  Sex: Male

DRUGS (2)
  1. CIPROFLOXACIN [Suspect]
     Active Substance: CIPROFLOXACIN
     Indication: Brucellosis
     Dosage: 500 MG, 2X/DAY
     Route: 065
  2. DOXYCYCLINE [Suspect]
     Active Substance: DOXYCYCLINE
     Indication: Brucellosis
     Dosage: 100 MG, 2X/DAY
     Route: 065

REACTIONS (5)
  - Hepatic encephalopathy [Unknown]
  - Drug ineffective [Unknown]
  - Condition aggravated [Unknown]
  - Pancytopenia [Unknown]
  - Pyrexia [Unknown]
